FAERS Safety Report 8623185-X (Version None)
Quarter: 2012Q3

REPORT INFORMATION
  Report Type: 
  Country: None (occurrence: None)
  Receive Date: 20120827
  Receipt Date: 20120821
  Transmission Date: 20120928
  Serious: Yes (Hospitalization)
  Sender: FDA-Public Use
  Company Number: PHHY2012FR071666

PATIENT
  Sex: Female
  Weight: 82 kg

DRUGS (6)
  1. LANSOPRAZOLE [Concomitant]
  2. HELICIDINE [Concomitant]
     Dosage: UNK
     Dates: start: 20120101
  3. VENTOLIN [Concomitant]
     Dosage: UNK
     Dates: start: 20120101
  4. ULTRA LEVURA [Concomitant]
     Dosage: UNK
     Dates: start: 20120101
  5. CEFIXIME [Concomitant]
  6. ZOLEDRONOC ACID [Suspect]
     Indication: OSTEOPOROSIS
     Dosage: UNK
     Route: 042
     Dates: start: 20111107

REACTIONS (1)
  - HERNIAL EVENTRATION [None]
